FAERS Safety Report 9768045 (Version 3)
Quarter: 2013Q4

REPORT INFORMATION
  Report Type: Spontaneous
  Country: JP (occurrence: JP)
  Receive Date: 20131217
  Receipt Date: 20131220
  Transmission Date: 20140711
  Serious: Yes (Hospitalization)
  Sender: FDA-Public Use
  Company Number: JP-PFIZER INC-2013341102

PATIENT
  Sex: Female

DRUGS (2)
  1. ANCARON [Suspect]
     Dosage: 100 MG, TWICE DAILY
     Route: 048
     Dates: start: 20120606
  2. ARTIST [Suspect]
     Dosage: UNK
     Route: 065

REACTIONS (1)
  - Liver disorder [Recovering/Resolving]
